FAERS Safety Report 24926619 (Version 4)
Quarter: 2025Q3

REPORT INFORMATION
  Report Type: Spontaneous
  Country: CA (occurrence: CA)
  Receive Date: 20250205
  Receipt Date: 20250911
  Transmission Date: 20251020
  Serious: Yes (Other)
  Sender: CELLTRION
  Company Number: CA-CELLTRION INC.-2025CA003501

PATIENT

DRUGS (2)
  1. YUFLYMA [Suspect]
     Active Substance: ADALIMUMAB-AATY
     Indication: Crohn^s disease
     Dosage: 40 MG, EVERY 7 DAYS (MAINTENANCE - 40 MG - SC (SUBCUTANEOUS) EVERY 7 DAYS)
     Route: 058
     Dates: start: 20231102
  2. YUFLYMA [Suspect]
     Active Substance: ADALIMUMAB-AATY

REACTIONS (3)
  - Crohn^s disease [Unknown]
  - Therapy non-responder [Unknown]
  - Intentional dose omission [Unknown]
